FAERS Safety Report 17997404 (Version 4)
Quarter: 2021Q2

REPORT INFORMATION
  Report Type: Spontaneous
  Country: DE (occurrence: DE)
  Receive Date: 20200709
  Receipt Date: 20210512
  Transmission Date: 20210717
  Serious: Yes (Hospitalization, Disabling, Other)
  Sender: FDA-Public Use
  Company Number: DE-ROCHE-2633983

PATIENT
  Age: 49 Year
  Sex: Male
  Weight: 73 kg

DRUGS (7)
  1. RAMIPRIL. [Concomitant]
     Active Substance: RAMIPRIL
  2. SPIRONOLACTON [Concomitant]
     Active Substance: SPIRONOLACTONE
  3. HEMLIBRA [Suspect]
     Active Substance: EMICIZUMAB-KXWH
     Indication: HAEMOPHILIA A WITH ANTI FACTOR VIII
     Route: 058
     Dates: start: 20200225, end: 20200505
  4. AMLODIPIN [Concomitant]
     Active Substance: AMLODIPINE BESYLATE
  5. HYDROCHLOROTHIAZIDE. [Concomitant]
     Active Substance: HYDROCHLOROTHIAZIDE
  6. BELOC?ZOK [Concomitant]
     Active Substance: METOPROLOL SUCCINATE
  7. HEMLIBRA [Suspect]
     Active Substance: EMICIZUMAB-KXWH
     Dosage: 120 MG
     Route: 058

REACTIONS (6)
  - Haemarthrosis [Recovering/Resolving]
  - Hemiparesis [Unknown]
  - Hemiplegia [Not Recovered/Not Resolved]
  - Cerebral haemorrhage [Recovering/Resolving]
  - Hypertension [Unknown]
  - Dysphagia [Unknown]

NARRATIVE: CASE EVENT DATE: 20200515
